FAERS Safety Report 8873629 (Version 1)
Quarter: 2012Q4

REPORT INFORMATION
  Report Type: 
  Country: KR (occurrence: KR)
  Receive Date: 20121030
  Receipt Date: 20121030
  Transmission Date: 20130627
  Serious: Yes (Other)
  Sender: FDA-Public Use
  Company Number: PHHY2012KR094165

PATIENT
  Age: 57 Year
  Sex: Male

DRUGS (5)
  1. PREDNISONE [Suspect]
     Indication: LYMPHOMA
     Dosage: 60 mg, UNK
  2. VINCRISTINE [Suspect]
     Indication: LYMPHOMA
     Dosage: 1.4 mg/m2, UNK
     Route: 040
  3. CYCLOPHOSPHAMIDE [Suspect]
     Indication: LYMPHOMA
     Dosage: 750 mg/m2, UNK
     Route: 042
  4. ADRIAMYCIN [Suspect]
     Indication: LYMPHOMA
     Dosage: 50 mg/m2, UNK
     Route: 042
  5. RADIOTHERAPY [Concomitant]
     Dosage: 36 GY, UNK

REACTIONS (1)
  - Neuropathy peripheral [Recovered/Resolved]
